FAERS Safety Report 7721703-7 (Version None)
Quarter: 2011Q3

REPORT INFORMATION
  Report Type: 
  Country: None (occurrence: None)
  Receive Date: 20110831
  Receipt Date: 20110824
  Transmission Date: 20111222
  Serious: Yes (Hospitalization)
  Sender: FDA-Public Use
  Company Number: FR-GLAXOSMITHKLINE-B0741816A

PATIENT
  Sex: Female

DRUGS (3)
  1. DEPAKENE [Concomitant]
     Indication: EPILEPSY
     Dosage: 500MG PER DAY
     Route: 048
  2. LAMICTAL [Suspect]
     Indication: EPILEPSY
     Route: 048
     Dates: start: 20110601, end: 20110702
  3. OROKEN [Suspect]
     Indication: ANTIBIOTIC THERAPY
     Route: 048
     Dates: start: 20110622, end: 20110626

REACTIONS (17)
  - PALPITATIONS [None]
  - ROSEOLA [None]
  - BLISTER [None]
  - PAIN IN EXTREMITY [None]
  - MUCOSAL EROSION [None]
  - COUGH [None]
  - ORAL HERPES [None]
  - AGRANULOCYTOSIS [None]
  - DRUG ERUPTION [None]
  - HEPATIC ENZYME ABNORMAL [None]
  - DIARRHOEA [None]
  - HYPERSENSITIVITY [None]
  - RASH PRURITIC [None]
  - CHILLS [None]
  - LYMPHOPENIA [None]
  - PYREXIA [None]
  - INTENTIONAL DRUG MISUSE [None]
